FAERS Safety Report 5047416-0 (Version None)
Quarter: 2006Q3

REPORT INFORMATION
  Report Type: 
  Country: None (occurrence: None)
  Receive Date: 20060703
  Receipt Date: 20060622
  Transmission Date: 20061208
  Serious: Yes (Hospitalization)
  Sender: FDA-Public Use
  Company Number: 2006-01064

PATIENT
  Age: 63 Year
  Sex: Female
  Weight: 78 kg

DRUGS (9)
  1. VELCADE [Suspect]
     Indication: LYMPHOMA
     Dosage: SEE IMAGE
     Route: 042
     Dates: start: 20060328, end: 20060501
  2. VELCADE [Suspect]
     Indication: LYMPHOMA
     Dosage: SEE IMAGE
     Route: 042
     Dates: start: 20060519
  3. HYDROCHLOROTHIAZIDE [Concomitant]
  4. NEXIUM [Concomitant]
  5. LISINOPRIL [Concomitant]
  6. VICODIN [Concomitant]
  7. POTASSIUM [Concomitant]
  8. XANAX [Concomitant]
  9. VALTREX [Concomitant]

REACTIONS (10)
  - ASTHENIA [None]
  - DIZZINESS [None]
  - GASTROENTERITIS VIRAL [None]
  - HAEMOGLOBIN ABNORMAL [None]
  - HERPES ZOSTER [None]
  - LEUKOPENIA [None]
  - MALAISE [None]
  - MUSCULOSKELETAL CHEST PAIN [None]
  - NEUTROPENIA [None]
  - THROMBOCYTOPENIA [None]
